FAERS Safety Report 16055458 (Version 1)
Quarter: 2019Q1

REPORT INFORMATION
  Report Type: Report from Study
  Country: IT (occurrence: IT)
  Receive Date: 20190311
  Receipt Date: 20190311
  Transmission Date: 20190418
  Serious: Yes (Hospitalization)
  Sender: FDA-Public Use
  Company Number: IT-TEVA-2019-IT-1021215

PATIENT
  Age: 53 Year
  Sex: Female

DRUGS (3)
  1. TACHIPIRINA 1000 MG COMPRESSE [Concomitant]
     Active Substance: ACETAMINOPHEN
     Route: 048
  2. CARBOLITHIUM 300 MG CAPSULE RIGIDE [Suspect]
     Active Substance: LITHIUM CARBONATE
     Indication: BIPOLAR DISORDER
     Dosage: 900 MILLIGRAM DAILY;
     Route: 048
  3. TORA-DOL 20 MG/ML GOCCE ORALI, SOLUZIONE [Concomitant]
     Active Substance: KETOROLAC TROMETHAMINE
     Route: 048

REACTIONS (2)
  - Tremor [Recovering/Resolving]
  - Antipsychotic drug level increased [Recovering/Resolving]

NARRATIVE: CASE EVENT DATE: 20190212
